FAERS Safety Report 11173243 (Version 1)
Quarter: 2015Q2

REPORT INFORMATION
  Report Type: Spontaneous
  Country: US (occurrence: US)
  Receive Date: 20150608
  Receipt Date: 20150608
  Transmission Date: 20150821
  Serious: Yes (Other)
  Sender: FDA-Public Use
  Company Number: US-RB-077844-15

PATIENT
  Age: 54 Year
  Sex: Male

DRUGS (3)
  1. AMOXICILLIN. [Suspect]
     Active Substance: AMOXICILLIN
     Indication: PHARYNGITIS STREPTOCOCCAL
     Route: 065
     Dates: start: 20150522
  2. MUCINEX [Suspect]
     Active Substance: GUAIFENESIN
     Indication: PHARYNGITIS STREPTOCOCCAL
     Route: 065
     Dates: start: 20150522
  3. PENICILLIN [Concomitant]
     Active Substance: PENICILLIN
     Indication: PRODUCT USED FOR UNKNOWN INDICATION
     Route: 065

REACTIONS (4)
  - Dysuria [Unknown]
  - Renal pain [Unknown]
  - Oedematous kidney [Unknown]
  - Product use issue [Unknown]

NARRATIVE: CASE EVENT DATE: 201505
